FAERS Safety Report 9084811 (Version 1)
Quarter: 2013Q1

REPORT INFORMATION
  Report Type: Spontaneous
  Country: US (occurrence: US)
  Receive Date: 20130218
  Receipt Date: 20130218
  Transmission Date: 20140127
  Serious: Yes (Other)
  Sender: FDA-Public Use
  Company Number: PHEH2012US012324

PATIENT
  Age: 57 Year
  Sex: Female
  Weight: 131.52 kg

DRUGS (13)
  1. GLEEVEC [Suspect]
     Indication: CHRONIC MYELOID LEUKAEMIA
     Dosage: 400 MG, QD
     Route: 048
     Dates: start: 20120516
  2. GLEEVEC [Suspect]
     Dosage: 400 MG, QD
     Route: 048
  3. GLEEVEC [Suspect]
     Dosage: 400 MG DAILY
     Route: 048
  4. GLEEVEC [Suspect]
     Dosage: 400 MG DAILY
     Route: 048
  5. HUMULIN [Concomitant]
     Dosage: UNK UKN, UNK
  6. AMLODIPINE [Concomitant]
     Dosage: 2.5 MG, UNK
  7. FUROSEMIDE [Concomitant]
     Dosage: 20 MG, UNK
  8. LIPITOR [Concomitant]
     Dosage: 10 MG, UNK
  9. LANTUS [Concomitant]
     Dosage: UNK UKN, UNK
  10. TRAMADOL [Concomitant]
     Dosage: UNK UKN, UNK
  11. METFORMIN [Concomitant]
     Dosage: 500 MG, UNK
  12. ALLOPURINOL [Concomitant]
     Dosage: UNK UKN, UNK
  13. LEXAPRO [Concomitant]
     Dosage: 10 MG, UNK

REACTIONS (9)
  - Throat tightness [Unknown]
  - Ear infection [Unknown]
  - Fluid retention [Unknown]
  - Face oedema [Unknown]
  - Nausea [Recovering/Resolving]
  - Vomiting [Unknown]
  - Local swelling [Unknown]
  - Joint swelling [Unknown]
  - Eye disorder [Unknown]
